FAERS Safety Report 18877515 (Version 1)
Quarter: 2021Q1

REPORT INFORMATION
  Report Type: Spontaneous
  Country: US (occurrence: US)
  Receive Date: 20210210
  Receipt Date: 20210210
  Transmission Date: 20210420
  Serious: Yes (Other)
  Sender: FDA-Public Use
  Company Number: None

PATIENT
  Age: 38 Year
  Sex: Male
  Weight: 83.25 kg

DRUGS (1)
  1. LEVOTHYROXINE. [Suspect]
     Active Substance: LEVOTHYROXINE
     Indication: HYPOTHYROIDISM
     Dosage: ?          QUANTITY:30 TABLET(S);?
     Route: 048
     Dates: start: 20210111, end: 20210210

REACTIONS (4)
  - Rash [None]
  - Rash erythematous [None]
  - Pruritus [None]
  - Burning sensation [None]

NARRATIVE: CASE EVENT DATE: 20210201
